FAERS Safety Report 6129640-9 (Version None)
Quarter: 2009Q1

REPORT INFORMATION
  Report Type: 
  Country: None (occurrence: None)
  Receive Date: 20090324
  Receipt Date: 20090310
  Transmission Date: 20090719
  Serious: Yes (Life-Threatening, Hospitalization)
  Sender: FDA-Public Use
  Company Number: FR-SANOFI-SYNTHELABO-A01200902598

PATIENT
  Age: 71 Year
  Sex: Male

DRUGS (2)
  1. NSAID [Concomitant]
     Indication: DRUG USE FOR UNKNOWN INDICATION
     Dosage: UNK
     Route: 065
  2. PLAVIX [Suspect]
     Indication: RENAL ARTERY STENOSIS
     Dosage: UNK
     Route: 048

REACTIONS (1)
  - DUODENAL ULCER PERFORATION [None]
